FAERS Safety Report 9663793 (Version 1)
Quarter: 2013Q4

REPORT INFORMATION
  Report Type: Spontaneous
  Country: US (occurrence: None)
  Receive Date: 20131030
  Receipt Date: 20131030
  Transmission Date: 20140711
  Serious: No
  Sender: FDA-Public Use
  Company Number: None

PATIENT
  Age: 45 Year
  Sex: Female
  Weight: 54.43 kg

DRUGS (2)
  1. ESCITALOPRAM [Suspect]
     Indication: SOCIAL PHOBIA
     Dosage: 1 DOSE ONCE DAILY TAKEN BY MOUTH
     Route: 048
     Dates: start: 20131001, end: 20131029
  2. ESCITALOPRAM [Suspect]
     Indication: PANIC ATTACK
     Dosage: 1 DOSE ONCE DAILY TAKEN BY MOUTH
     Route: 048
     Dates: start: 20131001, end: 20131029

REACTIONS (8)
  - Gastrointestinal disorder [None]
  - Flatulence [None]
  - Diarrhoea [None]
  - Depression [None]
  - Insomnia [None]
  - Fatigue [None]
  - Headache [None]
  - Weight decreased [None]
